FAERS Safety Report 17104989 (Version 2)
Quarter: 2019Q4

REPORT INFORMATION
  Report Type: Spontaneous
  Country: JP (occurrence: JP)
  Receive Date: 20191203
  Receipt Date: 20191204
  Transmission Date: 20200122
  Serious: Yes (Hospitalization, Other)
  Sender: FDA-Public Use
  Company Number: JP-009507513-1909JPN001757J

PATIENT
  Age: 67 Year
  Sex: Male
  Weight: 68 kg

DRUGS (7)
  1. CALFINA [Concomitant]
     Active Substance: ALFACALCIDOL
     Dosage: 1 DOSAGE FORM, QD
     Route: 048
     Dates: start: 20181018
  2. ASPARA-CA [Concomitant]
     Active Substance: CALCIUM ASPARTATE
     Dosage: 2 DOSAGE FORM, BID
     Route: 048
     Dates: start: 20181018
  3. RANMARK [Concomitant]
     Active Substance: DENOSUMAB
     Indication: METASTASES TO BONE
     Dosage: UNK
     Route: 042
     Dates: start: 20181018
  4. KEYTRUDA [Suspect]
     Active Substance: PEMBROLIZUMAB
     Dosage: 200 MILLIGRAM, Q3W
     Route: 041
     Dates: start: 20190108, end: 20190319
  5. ABRAXANE [Suspect]
     Active Substance: PACLITAXEL
     Indication: NON-SMALL CELL LUNG CANCER
     Dosage: 170 MILLIGRAM
     Route: 041
     Dates: start: 20190108, end: 20190319
  6. CARBOPLATIN. [Suspect]
     Active Substance: CARBOPLATIN
     Indication: NON-SMALL CELL LUNG CANCER
     Dosage: 840 MILLIGRAM
     Route: 041
     Dates: start: 20190108, end: 20190319
  7. KEYTRUDA [Suspect]
     Active Substance: PEMBROLIZUMAB
     Indication: NON-SMALL CELL LUNG CANCER
     Dosage: 200 MILLIGRAM, Q3W
     Route: 041
     Dates: start: 20181211, end: 20181211

REACTIONS (4)
  - Pneumothorax [Unknown]
  - Off label use [Unknown]
  - Pneumonitis [Recovering/Resolving]
  - Rash [Recovered/Resolved]

NARRATIVE: CASE EVENT DATE: 20190108
